FAERS Safety Report 13155680 (Version 1)
Quarter: 2017Q1

REPORT INFORMATION
  Report Type: Spontaneous
  Country: US (occurrence: US)
  Receive Date: 20170126
  Receipt Date: 20170126
  Transmission Date: 20170428
  Serious: No
  Sender: FDA-Public Use
  Company Number: US-ROCHE-GNE310174

PATIENT
  Age: 47 Year
  Sex: Female
  Weight: 93.6 kg

DRUGS (3)
  1. LIDOCAINE. [Concomitant]
     Active Substance: LIDOCAINE
     Indication: PRODUCT USED FOR UNKNOWN INDICATION
     Route: 058
  2. CATHFLO ACTIVASE [Suspect]
     Active Substance: ALTEPLASE
     Indication: ARTERIOVENOUS GRAFT THROMBOSIS
     Dosage: 2 MG, SINGLE
     Route: 042
     Dates: start: 20101115
  3. HEPARIN SALINE [Concomitant]
     Indication: PRODUCT USED FOR UNKNOWN INDICATION

REACTIONS (2)
  - Pruritus [Recovered/Resolved]
  - Chills [None]

NARRATIVE: CASE EVENT DATE: 20101115
